FAERS Safety Report 26061294 (Version 1)
Quarter: 2025Q4

REPORT INFORMATION
  Report Type: Spontaneous
  Country: EU (occurrence: EU)
  Receive Date: 20251118
  Receipt Date: 20251118
  Transmission Date: 20260118
  Serious: Yes (Hospitalization)
  Sender: VERTEX
  Company Number: None

PATIENT
  Age: 6 Year
  Sex: Male
  Weight: 24 kg

DRUGS (2)
  1. ELEXACAFTOR\IVACAFTOR\TEZACAFTOR [Suspect]
     Active Substance: ELEXACAFTOR\IVACAFTOR\TEZACAFTOR
     Indication: Cystic fibrosis
     Dosage: 1 UNIT 1 PER DAY
     Route: 048
     Dates: start: 20240511
  2. ELEXACAFTOR\IVACAFTOR\TEZACAFTOR [Suspect]
     Active Substance: ELEXACAFTOR\IVACAFTOR\TEZACAFTOR
     Dosage: DECREASED DOSE
     Route: 048
     Dates: start: 20240901

REACTIONS (2)
  - Distal intestinal obstruction syndrome [Not Recovered/Not Resolved]
  - Intussusception [Not Recovered/Not Resolved]
